FAERS Safety Report 15008537 (Version 4)
Quarter: 2019Q1

REPORT INFORMATION
  Report Type: Report from Study
  Country: US (occurrence: US)
  Receive Date: 20180613
  Receipt Date: 20190311
  Transmission Date: 20190417
  Serious: Yes (Other)
  Sender: FDA-Public Use
  Company Number: US-ACTELION-A-NJ2015-126481

PATIENT
  Age: 71 Year
  Sex: Male
  Weight: 79.82 kg

DRUGS (6)
  1. CHLORTHALIDONE. [Concomitant]
     Active Substance: CHLORTHALIDONE
     Dosage: UNK
     Dates: start: 20170104
  2. POTASSIUM CHLORIDE. [Concomitant]
     Active Substance: POTASSIUM CHLORIDE
  3. OPSUMIT [Suspect]
     Active Substance: MACITENTAN
     Indication: PULMONARY ARTERIAL HYPERTENSION
     Dosage: 10 MG, QD
     Route: 048
     Dates: start: 20151021
  4. ADEMPAS [Concomitant]
     Active Substance: RIOCIGUAT
     Dosage: UNK
     Dates: start: 20170104
  5. ADCIRCA [Concomitant]
     Active Substance: TADALAFIL
  6. LIPITOR [Concomitant]
     Active Substance: ATORVASTATIN CALCIUM
     Dosage: 40 MG, UNK

REACTIONS (19)
  - Type 2 diabetes mellitus [Not Recovered/Not Resolved]
  - Oedema peripheral [Recovered/Resolved]
  - Rhinorrhoea [Unknown]
  - Pruritus [Unknown]
  - Dyspnoea [Recovered/Resolved]
  - Fall [Unknown]
  - Dry mouth [Unknown]
  - Respiratory tract infection [Unknown]
  - Condition aggravated [Unknown]
  - Hypoventilation [Not Recovered/Not Resolved]
  - Skin disorder [Unknown]
  - Hypokalaemia [Recovered/Resolved]
  - Arteriosclerosis coronary artery [Not Recovered/Not Resolved]
  - Chest pain [Recovered/Resolved]
  - Oedema [Unknown]
  - Renal impairment [Not Recovered/Not Resolved]
  - Aspartate aminotransferase increased [Unknown]
  - Blood creatinine increased [Unknown]
  - Blood bilirubin increased [Unknown]

NARRATIVE: CASE EVENT DATE: 20151113
